FAERS Safety Report 15468402 (Version 6)
Quarter: 2019Q1

REPORT INFORMATION
  Report Type: Spontaneous
  Country: NL (occurrence: NL)
  Receive Date: 20181005
  Receipt Date: 20190122
  Transmission Date: 20190417
  Serious: Yes (Hospitalization, Other)
  Sender: FDA-Public Use
  Company Number: PHHY2018NL113755

PATIENT
  Age: 63 Year
  Sex: Male

DRUGS (13)
  1. CICLOSPORIN [Suspect]
     Active Substance: CYCLOSPORINE
     Indication: CHRONIC GRAFT VERSUS HOST DISEASE
     Dosage: 75 MG, BID
     Route: 065
     Dates: start: 201209
  2. CICLOSPORIN [Interacting]
     Active Substance: CYCLOSPORINE
     Dosage: 225 MG, BID
     Route: 065
     Dates: start: 201209
  3. VORICONAZOLE. [Interacting]
     Active Substance: VORICONAZOLE
     Indication: BRONCHOPULMONARY ASPERGILLOSIS
     Dosage: 200 MG, BID
     Route: 065
     Dates: start: 201602, end: 201603
  4. ACETYLSALICYLIC ACID [Concomitant]
     Active Substance: ASPIRIN
     Indication: PERCUTANEOUS CORONARY INTERVENTION
     Dosage: UNK
     Route: 065
  5. CICLOSPORIN [Interacting]
     Active Substance: CYCLOSPORINE
     Dosage: 75 MG, BID
     Route: 065
     Dates: start: 201305, end: 2016
  6. CICLOSPORIN [Interacting]
     Active Substance: CYCLOSPORINE
     Dosage: 100 MG, BID
     Route: 065
     Dates: start: 2016
  7. SIMVASTATIN. [Interacting]
     Active Substance: SIMVASTATIN
     Indication: CARDIOVASCULAR EVENT PROPHYLAXIS
     Dosage: 40 MG, QD
     Route: 065
     Dates: start: 201503, end: 201603
  8. VORICONAZOLE. [Interacting]
     Active Substance: VORICONAZOLE
     Dosage: 200 MG, BID
     Route: 065
     Dates: start: 201603
  9. SIMVASTATIN. [Interacting]
     Active Substance: SIMVASTATIN
     Indication: PERCUTANEOUS CORONARY INTERVENTION
  10. VORICONAZOLE. [Interacting]
     Active Substance: VORICONAZOLE
     Dosage: 75 MG, BID
     Route: 065
     Dates: start: 201609
  11. PREDNISONE. [Concomitant]
     Active Substance: PREDNISONE
     Indication: PRODUCT USED FOR UNKNOWN INDICATION
     Route: 065
  12. CLOPIDOGREL [Concomitant]
     Active Substance: CLOPIDOGREL BISULFATE
     Indication: PERCUTANEOUS CORONARY INTERVENTION
     Dosage: UNK
     Route: 065
  13. CICLOSPORIN [Interacting]
     Active Substance: CYCLOSPORINE
     Dosage: 25 MG, QD
     Route: 065
     Dates: start: 201209, end: 201209

REACTIONS (2)
  - Rhabdomyolysis [Recovered/Resolved]
  - Drug interaction [Recovered/Resolved]

NARRATIVE: CASE EVENT DATE: 2016
